FAERS Safety Report 7415498-4 (Version None)
Quarter: 2011Q2

REPORT INFORMATION
  Report Type: 
  Country: None (occurrence: None)
  Receive Date: 20110414
  Receipt Date: 20110404
  Transmission Date: 20111010
  Serious: Yes (Hospitalization, Other)
  Sender: FDA-Public Use
  Company Number: US-ALEXION-A201100454

PATIENT
  Sex: Female
  Weight: 68 kg

DRUGS (2)
  1. SOLIRIS [Suspect]
     Indication: PAROXYSMAL NOCTURNAL HAEMOGLOBINURIA
     Dosage: UNK
     Route: 042
     Dates: start: 20080201
  2. SOLIRIS [Suspect]
     Dosage: 900 MG, Q2W
     Route: 042
     Dates: start: 20080101

REACTIONS (6)
  - INFLUENZA [None]
  - BLOOD POTASSIUM DECREASED [None]
  - FLANK PAIN [None]
  - HAEMOLYSIS [None]
  - HEADACHE [None]
  - URINARY TRACT INFECTION [None]
